FAERS Safety Report 8791346 (Version 1)
Quarter: 2012Q4

REPORT INFORMATION
  Report Type: Spontaneous
  Country: US (occurrence: None)
  Receive Date: 20120914
  Receipt Date: 20120914
  Transmission Date: 20130627
  Serious: Yes (Life-Threatening, Other)
  Sender: FDA-Public Use
  Company Number: None

PATIENT
  Age: 89 Year
  Sex: Male
  Weight: 50.8 kg

DRUGS (5)
  1. LEXAPRO [Suspect]
     Indication: LETHARGY
     Dosage: from May 1st to May 8th 1st time
from June 8th to June 30
     Route: 048
  2. LEXAPRO [Suspect]
     Indication: MEMORY LOSS
     Dosage: from May 1st to May 8th 1st time
from June 8th to June 30
     Route: 048
  3. NAMENDA [Concomitant]
  4. ARICEPT [Concomitant]
  5. AXONA MEDICAL FOOD [Concomitant]

REACTIONS (10)
  - Abnormal behaviour [None]
  - Depression [None]
  - Suicidal ideation [None]
  - Lethargy [None]
  - Nausea [None]
  - Confusional state [None]
  - Malaise [None]
  - Physical assault [None]
  - Weight decreased [None]
  - Imprisonment [None]
